FAERS Safety Report 7282790-6 (Version None)
Quarter: 2011Q1

REPORT INFORMATION
  Report Type: 
  Country: None (occurrence: None)
  Receive Date: 20110209
  Receipt Date: 20110202
  Transmission Date: 20110831
  Serious: Yes (Life-Threatening, Hospitalization, Other)
  Sender: FDA-Public Use
  Company Number: NO-BAYER-200812865GPV

PATIENT
  Sex: Female

DRUGS (2)
  1. YASMIN [Suspect]
  2. YASMIN [Suspect]
     Indication: CONTRACEPTION
     Dosage: 1 TABLET PER DAY
     Route: 048
     Dates: start: 20070401, end: 20071201

REACTIONS (17)
  - PULMONARY EMBOLISM [None]
  - DYSPNOEA [None]
  - COR PULMONALE ACUTE [None]
  - LOSS OF CONSCIOUSNESS [None]
  - RESPIRATORY FAILURE [None]
  - HYPOXIC-ISCHAEMIC ENCEPHALOPATHY [None]
  - MUCOSAL HAEMORRHAGE [None]
  - HYPERTENSION [None]
  - DEPRESSION [None]
  - CARDIAC ARREST [None]
  - VESSEL PUNCTURE SITE HAEMORRHAGE [None]
  - CYANOSIS [None]
  - MULTI-ORGAN FAILURE [None]
  - HYPOTHERMIA [None]
  - ANURIA [None]
  - URINARY TRACT INFECTION [None]
  - BLOOD POTASSIUM INCREASED [None]
